FAERS Safety Report 24448377 (Version 1)
Quarter: 2024Q4

REPORT INFORMATION
  Report Type: Spontaneous
  Country: SI (occurrence: SI)
  Receive Date: 20241017
  Receipt Date: 20241017
  Transmission Date: 20250114
  Serious: Yes (Hospitalization)
  Sender: CHEPLAPHARM
  Company Number: None

PATIENT
  Age: 84 Year
  Sex: Female

DRUGS (8)
  1. HYDROXYUREA [Suspect]
     Active Substance: HYDROXYUREA
     Indication: Essential thrombocythaemia
     Dosage: 500 MG/24H?DAILY DOSE: 500 MILLIGRAM
     Route: 048
  2. TORSEMIDE [Concomitant]
     Active Substance: TORSEMIDE
  3. ATORVASTATIN CALCIUM [Concomitant]
     Active Substance: ATORVASTATIN CALCIUM
  4. ERYTHROPOIETIN [Concomitant]
     Active Substance: ERYTHROPOIETIN
     Dosage: STRENGHT: 40.000 I.E./1 ML
  5. DIOVAN [Concomitant]
     Active Substance: VALSARTAN
     Dosage: STRENGHT: 160 MG ?DOSE: 320 MG
  6. THROMBOREDUCTIN [Concomitant]
  7. ALDACTONE [Concomitant]
     Active Substance: SPIRONOLACTONE
  8. Lercapress [Concomitant]

REACTIONS (1)
  - Gout [Recovered/Resolved]
